FAERS Safety Report 4747148-X (Version None)
Quarter: 2005Q3

REPORT INFORMATION
  Report Type: 
  Country: None (occurrence: None)
  Receive Date: 20050815
  Receipt Date: 20040629
  Transmission Date: 20060218
  Serious: Yes (Hospitalization)
  Sender: FDA-Public Use
  Company Number: MEDI-0002077

PATIENT
  Age: 1 Month
  Weight: 4.0824 kg

DRUGS (3)
  1. SYNAGIS [Suspect]
     Indication: ANTIVIRAL PROPHYLAXIS
     Dosage: 56 MG, 1 IN 30 D, INTRAMUSCULAR
     Route: 030
     Dates: start: 20040227, end: 20040227
  2. SYNAGIS [Suspect]
     Dosage: 68 MG, 1 IN 30 D, INTRAMUSCULAR
     Route: 030
     Dates: start: 20040323
  3. SYNAGIS [Suspect]
     Dosage: 79 MG, 1 IN 30 D, INTRAMUSCULAR
     Dates: start: 20040420, end: 20040420

REACTIONS (3)
  - COUGH [None]
  - NASAL CONGESTION [None]
  - RESPIRATORY SYNCYTIAL VIRUS INFECTION [None]
